FAERS Safety Report 12138579 (Version 3)
Quarter: 2016Q3

REPORT INFORMATION
  Report Type: Spontaneous
  Country: US (occurrence: US)
  Receive Date: 20160302
  Receipt Date: 20160718
  Transmission Date: 20161109
  Serious: Yes (Other)
  Sender: FDA-Public Use
  Company Number: US-TEVA-636465USA

PATIENT
  Age: 61 Year
  Sex: Female

DRUGS (1)
  1. ZECUITY [Suspect]
     Active Substance: SUMATRIPTAN SUCCINATE
     Indication: MIGRAINE
     Route: 062
     Dates: start: 201602, end: 201602

REACTIONS (11)
  - Muscle tightness [Recovered/Resolved]
  - Application site dryness [Recovered/Resolved]
  - Device battery issue [Unknown]
  - Skin exfoliation [Recovered/Resolved]
  - Application site erythema [Recovered/Resolved]
  - Sunburn [Recovered/Resolved]
  - Peripheral swelling [Recovered/Resolved]
  - Limb discomfort [Recovered/Resolved]
  - Application site exfoliation [Recovered/Resolved]
  - Application site discolouration [Recovered/Resolved]
  - Drug ineffective [Unknown]

NARRATIVE: CASE EVENT DATE: 201602
